FAERS Safety Report 7947111 (Version 4)
Quarter: 2013Q3

REPORT INFORMATION
  Report Type: Report from Study
  Country: JP (occurrence: JP)
  Receive Date: 20110517
  Receipt Date: 20130905
  Transmission Date: 20140515
  Serious: Yes (Hospitalization)
  Sender: FDA-Public Use
  Company Number: JP-BRISTOL-MYERS SQUIBB COMPANY-15744261

PATIENT
  Age: 62 Year
  Sex: Female
  Weight: 49.8 kg

DRUGS (9)
  1. ABILIFY TABS [Suspect]
     Indication: SCHIZOPHRENIA
     Route: 048
     Dates: start: 20110401, end: 20110507
  2. TRIAZOLAM [Concomitant]
     Dosage: TABS
     Dates: start: 20110323, end: 20110509
  3. THEODUR G [Concomitant]
     Dosage: TABS
     Dates: start: 19940913
  4. BUFFERIN TABS 330 MG [Concomitant]
     Dates: start: 20010516
  5. MECOBALAMIN [Concomitant]
     Dosage: TABS
     Dates: start: 20080402
  6. FLUOROMETHOLONE [Concomitant]
     Route: 047
  7. CAMPHOR [Concomitant]
     Route: 061
  8. MENTHOL [Concomitant]
     Route: 061
  9. ZYPREXA [Concomitant]
     Dates: start: 20070406, end: 20110420

REACTIONS (1)
  - Psychiatric symptom [Recovered/Resolved]
